FAERS Safety Report 6239263-9 (Version None)
Quarter: 2009Q2

REPORT INFORMATION
  Report Type: 
  Country: None (occurrence: None)
  Receive Date: 20090622
  Receipt Date: 20090612
  Transmission Date: 20091009
  Serious: No
  Sender: FDA-Public Use
  Company Number: CR-ROCHE-631856

PATIENT
  Sex: Female

DRUGS (1)
  1. ROACCUTANE [Suspect]
     Indication: ACNE
     Dosage: FORMULATION : CAPSULE,TABLET
     Route: 048
     Dates: start: 20090501

REACTIONS (2)
  - NO ADVERSE EVENT [None]
  - PREGNANCY [None]
